FAERS Safety Report 9685239 (Version 2)
Quarter: 2013Q4

REPORT INFORMATION
  Report Type: Spontaneous
  Country: JP (occurrence: JP)
  Receive Date: 20131113
  Receipt Date: 20131125
  Transmission Date: 20140711
  Serious: Yes (Hospitalization)
  Sender: FDA-Public Use
  Company Number: JP-ACTELION-A-CH2013-91170

PATIENT
  Age: 34 Month
  Sex: Female

DRUGS (3)
  1. TRACLEER [Suspect]
     Indication: PULMONARY HYPERTENSION
     Dosage: UNK
     Route: 048
  2. SILDENAFIL CITRATE [Concomitant]
  3. OXYGEN [Concomitant]

REACTIONS (3)
  - Pneumonia respiratory syncytial viral [Recovered/Resolved]
  - Cell marker increased [Recovered/Resolved]
  - Pyrexia [Recovered/Resolved]
